FAERS Safety Report 9562923 (Version 1)
Quarter: 2013Q3

REPORT INFORMATION
  Report Type: Spontaneous
  Country: US (occurrence: US)
  Receive Date: 20130927
  Receipt Date: 20130927
  Transmission Date: 20140515
  Serious: No
  Sender: FDA-Public Use
  Company Number: US-B.I. PHARMACEUTICALS,INC./RIDGEFIELD-2013-BI-29660BP

PATIENT
  Age: 68 Year
  Sex: Male

DRUGS (1)
  1. TRADJENTA [Suspect]

REACTIONS (2)
  - Urticaria [Unknown]
  - Blood disorder [Unknown]
